FAERS Safety Report 7432711-8 (Version None)
Quarter: 2011Q2

REPORT INFORMATION
  Report Type: 
  Country: None (occurrence: None)
  Receive Date: 20110415
  Receipt Date: 20110331
  Transmission Date: 20111010
  Serious: Yes (Other)
  Sender: FDA-Public Use
  Company Number: AUR-APL-2011-01216

PATIENT
  Age: 50 Year
  Sex: Female
  Weight: 77.55 kg

DRUGS (3)
  1. LIPITOR [Suspect]
  2. HYDROCHLOROTHIAZIDE [Suspect]
     Indication: HYPERTENSION
     Dosage: 25MG-DAILY-ORAL
     Route: 048
     Dates: start: 20110101
  3. ACCUPRIL [Suspect]
     Indication: HYPERTENSION
     Dosage: 10MG-DAILY-ORAL
     Route: 048
     Dates: start: 20110101

REACTIONS (10)
  - ORAL DISCOMFORT [None]
  - INSOMNIA [None]
  - DISCOMFORT [None]
  - VAGINAL DISORDER [None]
  - BLOOD PRESSURE INADEQUATELY CONTROLLED [None]
  - OEDEMA MOUTH [None]
  - DYSPNOEA [None]
  - WEIGHT INCREASED [None]
  - DRUG INTERACTION [None]
  - NASAL DISORDER [None]
